FAERS Safety Report 11334868 (Version 1)
Quarter: 2015Q3

REPORT INFORMATION
  Report Type: Spontaneous
  Country: US (occurrence: None)
  Receive Date: 20150731
  Receipt Date: 20150731
  Transmission Date: 20151125
  Serious: Yes (Other)
  Sender: FDA-Public Use
  Company Number: KAD201507-002411

PATIENT
  Age: 55 Year
  Sex: Male
  Weight: 95.25 kg

DRUGS (2)
  1. RIBAVIRIN (RIBAVIRIN) [Suspect]
     Active Substance: RIBAVIRIN
     Indication: HEPATITIS C
     Route: 048
     Dates: start: 20150529
  2. VIEKIRA PAK [Suspect]
     Active Substance: DASABUVIR\OMBITASVIR\PARITAPREVIR\RITONAVIR
     Indication: HEPATITIS C
     Route: 048
     Dates: start: 20150529

REACTIONS (7)
  - Seizure [None]
  - Muscle twitching [None]
  - Erythema [None]
  - Chest pain [None]
  - Back pain [None]
  - Dyskinesia [None]
  - Dyspnoea [None]
